FAERS Safety Report 20078048 (Version 2)
Quarter: 2022Q1

REPORT INFORMATION
  Report Type: Report from Study
  Country: CA (occurrence: CA)
  Receive Date: 20211117
  Receipt Date: 20220110
  Transmission Date: 20220423
  Serious: Yes (Other)
  Sender: FDA-Public Use
  Company Number: CA-JNJFOC-20211122545

PATIENT
  Age: 42 Year
  Sex: Male

DRUGS (1)
  1. REMICADE [Suspect]
     Active Substance: INFLIXIMAB
     Indication: Colitis ulcerative
     Dosage: ON 09-NOV-2021, THE PATIENT RECEIVED HIS 2 ND INFUSION WITH 400 MG DOSE OF INFLIXIMAB, RECOMBINANT A
     Route: 042
     Dates: start: 20211021

REACTIONS (4)
  - Urethral fistula [Unknown]
  - Prostate cancer [Unknown]
  - Frequent bowel movements [Unknown]
  - General physical health deterioration [Unknown]

NARRATIVE: CASE EVENT DATE: 20211108
